FAERS Safety Report 21794227 (Version 1)
Quarter: 2022Q4

REPORT INFORMATION
  Report Type: Spontaneous
  Country: US (occurrence: None)
  Receive Date: 20221228
  Receipt Date: 20221228
  Transmission Date: 20230113
  Serious: Yes (Life-Threatening, Hospitalization)
  Sender: FDA-Public Use
  Company Number: None

PATIENT
  Age: 38 Year
  Sex: Female

DRUGS (1)
  1. PIQRAY [Suspect]
     Active Substance: ALPELISIB
     Indication: Adenocarcinoma
     Dosage: FREQUENCY : DAILY;?
     Route: 048
     Dates: start: 20220330, end: 20221209

REACTIONS (4)
  - Respiratory failure [None]
  - Pulmonary alveolar haemorrhage [None]
  - Pneumonitis [None]
  - Pneumonia [None]

NARRATIVE: CASE EVENT DATE: 20221203
